FAERS Safety Report 5472287-8 (Version None)
Quarter: 2007Q3

REPORT INFORMATION
  Report Type: 
  Country: None (occurrence: None)
  Receive Date: 20070925
  Receipt Date: 20070917
  Transmission Date: 20080115
  Serious: Yes (Life-Threatening, Hospitalization)
  Sender: FDA-Public Use
  Company Number: TPA2007A01399

PATIENT
  Age: 83 Year
  Sex: Male
  Weight: 97.977 kg

DRUGS (12)
  1. ACTOS [Suspect]
     Indication: TYPE 2 DIABETES MELLITUS
     Dosage: 45 MG, 1 IN 1 D, PER ORAL
     Route: 048
     Dates: start: 20051001, end: 20070614
  2. GLUCOPHAGE [Suspect]
     Indication: TYPE 2 DIABETES MELLITUS
     Dosage: 1000 MG, 2 IN 1 D, PER ORAL
     Route: 048
     Dates: start: 19820101
  3. AMARYL [Suspect]
     Indication: TYPE 2 DIABETES MELLITUS
     Dosage: 4 MG, 1 IN 1 D, PER ORAL
     Route: 048
     Dates: start: 19970101
  4. UNKNOWN INSULIN (INSULIN) [Concomitant]
  5. TOPROL-XL [Concomitant]
  6. ALLOPURINOL [Concomitant]
  7. COUMADIN [Concomitant]
  8. CRESTOR [Concomitant]
  9. DIGOXIN [Concomitant]
  10. ENALAPRIL MALEATE [Concomitant]
  11. FUROSEMIDE [Concomitant]
  12. POTASSIUM CHLORIDE [Concomitant]

REACTIONS (6)
  - ATRIAL FIBRILLATION [None]
  - BLOOD GLUCOSE INCREASED [None]
  - CARDIAC FLUTTER [None]
  - DRUG INEFFECTIVE [None]
  - OEDEMA [None]
  - PANCREATIC DISORDER [None]
